FAERS Safety Report 25124150 (Version 2)
Quarter: 2025Q2

REPORT INFORMATION
  Report Type: Spontaneous
  Country: DE (occurrence: DE)
  Receive Date: 20250326
  Receipt Date: 20250408
  Transmission Date: 20250716
  Serious: Yes (Hospitalization)
  Sender: FRESENIUS KABI
  Company Number: DE-009507513-2259890

PATIENT
  Age: 62 Year
  Sex: Female

DRUGS (5)
  1. CARBOPLATIN [Suspect]
     Active Substance: CARBOPLATIN
     Indication: Product used for unknown indication
     Dosage: AUC 1.5
  2. PACLITAXEL [Suspect]
     Active Substance: PACLITAXEL
     Indication: Product used for unknown indication
  3. PEMBROLIZUMAB [Suspect]
     Active Substance: PEMBROLIZUMAB
     Indication: Triple negative breast cancer
     Dosage: FOA - SOLUTION FOR INFUSION
  4. EPIRUBICIN [Suspect]
     Active Substance: EPIRUBICIN
     Indication: Product used for unknown indication
     Dates: end: 20250225
  5. CYCLOPHOSPHAMIDE [Suspect]
     Active Substance: CYCLOPHOSPHAMIDE
     Indication: Product used for unknown indication
     Dates: end: 20250225

REACTIONS (12)
  - Mental disorder [Unknown]
  - General physical health deterioration [Unknown]
  - Chest pain [Unknown]
  - Initial insomnia [Unknown]
  - Panic attack [Unknown]
  - Dyspnoea [Unknown]
  - Acute stress disorder [Unknown]
  - Sleep disorder [Unknown]
  - Anxiety [Unknown]
  - Panic disorder [Unknown]
  - Cancer pain [Unknown]
  - Pain in extremity [Unknown]
